FAERS Safety Report 8273374-1 (Version None)
Quarter: 2012Q2

REPORT INFORMATION
  Report Type: 
  Country: None (occurrence: None)
  Receive Date: 20120409
  Receipt Date: 20120409
  Transmission Date: 20120825
  Serious: Yes (Death, Hospitalization)
  Sender: FDA-Public Use
  Company Number: None

PATIENT
  Sex: Male
  Weight: 54 kg

DRUGS (6)
  1. PREDNISONE [Suspect]
     Dosage: 1950 MG
     Dates: end: 20120402
  2. PEG-L-ASPARAGINASE (PEGASPARGASE, ONCOSPAR) [Suspect]
     Dosage: 4025 UNIT
     Dates: end: 20120316
  3. DAUNORUBICIN HCL [Suspect]
     Dosage: 120 MG
     Dates: end: 20120327
  4. VINCRISTINE SULFATE [Suspect]
     Dosage: 6 MG
     Dates: end: 20120327
  5. CYTARABINE [Suspect]
     Dosage: 70 MG
     Dates: end: 20120313
  6. METHOTREXATE [Suspect]
     Dosage: 15 MG
     Dates: end: 20120321

REACTIONS (9)
  - HYPOTENSION [None]
  - DEHYDRATION [None]
  - INTERNATIONAL NORMALISED RATIO INCREASED [None]
  - OROPHARYNGEAL PAIN [None]
  - ACTIVATED PARTIAL THROMBOPLASTIN TIME PROLONGED [None]
  - PROTHROMBIN TIME PROLONGED [None]
  - MUCOSAL INFLAMMATION [None]
  - CONVULSION [None]
  - COMA [None]
